FAERS Safety Report 22072889 (Version 3)
Quarter: 2023Q2

REPORT INFORMATION
  Report Type: Spontaneous
  Country: BR (occurrence: BR)
  Receive Date: 20230308
  Receipt Date: 20230419
  Transmission Date: 20230722
  Serious: Yes (Other)
  Sender: FDA-Public Use
  Company Number: BR-BIOGEN-2023BI01191939

PATIENT
  Sex: Male

DRUGS (1)
  1. SPINRAZA [Suspect]
     Active Substance: NUSINERSEN
     Indication: Spinal muscular atrophy
     Route: 050

REACTIONS (5)
  - Blood pressure increased [Recovered/Resolved]
  - Tongue oedema [Unknown]
  - Blood potassium decreased [Unknown]
  - Diarrhoea infectious [Unknown]
  - Somnolence [Unknown]
